FAERS Safety Report 18092011 (Version 2)
Quarter: 2020Q3

REPORT INFORMATION
  Report Type: Spontaneous
  Country: US (occurrence: US)
  Receive Date: 20200730
  Receipt Date: 20200814
  Transmission Date: 20201103
  Serious: Yes (Other)
  Sender: FDA-Public Use
  Company Number: US-TEVA-2020-US-1806024

PATIENT
  Age: 49 Year
  Sex: Male

DRUGS (6)
  1. HYDROXYCHLOROQUINE [Suspect]
     Active Substance: HYDROXYCHLOROQUINE
     Indication: SARCOIDOSIS
     Dosage: 400 MILLIGRAM DAILY;
     Route: 065
  2. PREDNISONE. [Suspect]
     Active Substance: PREDNISONE
     Dosage: DUE TO SIGNS OF ACTIVE DISEASE, THE PATIENT WAS TOLD TO INCREASE PREDNISONE TO 40 MG AND START A ...
     Route: 065
  3. PREDNISONE. [Suspect]
     Active Substance: PREDNISONE
     Dosage: 3 MILLIGRAM DAILY; CURRENTLY TOLERATING A SLOW TAPER, NOW ON 3 MG PER DAY
     Route: 065
  4. METHOTREXATE. [Suspect]
     Active Substance: METHOTREXATE
     Indication: SARCOIDOSIS
     Route: 065
  5. PREDNISONE. [Suspect]
     Active Substance: PREDNISONE
     Indication: SARCOIDOSIS
     Dosage: AT THE TIME OF HIS VISIT PATIENT^S REGIMEN INCLUDED PREDNISONE 10 MG
     Route: 065
  6. AZATHIOPRINE. [Suspect]
     Active Substance: AZATHIOPRINE
     Indication: SARCOIDOSIS
     Dosage: 200 MILLIGRAM DAILY; DOSE OF AZATHIOPRINE WAS TITRATED UP TO 100MG TWICE A DAY
     Route: 065

REACTIONS (2)
  - Osteonecrosis [Unknown]
  - Drug ineffective [Unknown]
